FAERS Safety Report 18945925 (Version 1)
Quarter: 2021Q1

REPORT INFORMATION
  Report Type: Spontaneous
  Country: JP (occurrence: JP)
  Receive Date: 20210226
  Receipt Date: 20210226
  Transmission Date: 20210420
  Serious: Yes (Life-Threatening, Hospitalization, Other)
  Sender: FDA-Public Use
  Company Number: JP-BAYER-2020-280100

PATIENT
  Age: 31 Year
  Sex: Female
  Weight: 47 kg

DRUGS (4)
  1. YAZ [Suspect]
     Active Substance: DROSPIRENONE\ETHINYL ESTRADIOL
     Indication: DYSMENORRHOEA
     Dosage: DAILY DOSE 1 DF
     Route: 048
     Dates: start: 20170902, end: 20191211
  2. TEPRENONE [Concomitant]
     Active Substance: TEPRENONE
     Indication: ABDOMINAL PAIN UPPER
     Dosage: DAILY DOSE 150 MG
     Route: 048
     Dates: start: 20190923
  3. DUVADILAN [Concomitant]
     Active Substance: ISOXSUPRINE HYDROCHLORIDE
     Indication: DYSMENORRHOEA
     Dosage: DAILY DOSE 30 MG
     Route: 048
     Dates: start: 20180529, end: 20190622
  4. DICLOFENAC NA [Concomitant]
     Active Substance: DICLOFENAC SODIUM
     Indication: ANALGESIC THERAPY
     Dosage: DAILY DOSE 75 MG
     Route: 048
     Dates: start: 20190923

REACTIONS (3)
  - Hemiparesis [Recovering/Resolving]
  - Basal ganglia infarction [Recovering/Resolving]
  - Monoplegia [Recovering/Resolving]

NARRATIVE: CASE EVENT DATE: 20191211
